FAERS Safety Report 21058622 (Version 4)
Quarter: 2022Q3

REPORT INFORMATION
  Report Type: Report from Study
  Country: PT (occurrence: PT)
  Receive Date: 20220708
  Receipt Date: 20220823
  Transmission Date: 20221027
  Serious: Yes (Other)
  Sender: FDA-Public Use
  Company Number: PT-ABBVIE-22K-130-4316885-00

PATIENT
  Age: 77 Year
  Sex: Male

DRUGS (25)
  1. CARBIDOPA\LEVODOPA [Suspect]
     Active Substance: CARBIDOPA\LEVODOPA
     Indication: Parkinson^s disease
     Dosage: 20 MG PLUS 5 MG MORN 13CC MAINT:4.9CC/H; EXTRA:1CC
     Route: 050
     Dates: start: 20220217, end: 2022
  2. CARBIDOPA\LEVODOPA [Suspect]
     Active Substance: CARBIDOPA\LEVODOPA
     Dosage: 20 MG PLUS 5 MG MORN:15CC;MAINT:4.7CC/H; EXTRA:1CC
     Route: 050
     Dates: start: 2022, end: 20220311
  3. CARBIDOPA\LEVODOPA [Suspect]
     Active Substance: CARBIDOPA\LEVODOPA
     Dosage: 20 MG PLUS 5 MG MORN:16CC;MAINT:4.9CC/H; EXTRA:2CC
     Route: 050
     Dates: start: 20220311, end: 20220320
  4. CARBIDOPA\LEVODOPA [Suspect]
     Active Substance: CARBIDOPA\LEVODOPA
     Route: 050
     Dates: start: 20220325, end: 2022
  5. CARBIDOPA\LEVODOPA [Suspect]
     Active Substance: CARBIDOPA\LEVODOPA
     Route: 050
     Dates: start: 20220401, end: 20220406
  6. CARBIDOPA\LEVODOPA [Suspect]
     Active Substance: CARBIDOPA\LEVODOPA
     Dosage: 20 MG PLUS 5 MG, MD:17CC;MAINT:5.5CC/H; EXTRA:3CC
     Route: 050
     Dates: start: 20220406, end: 20220412
  7. CARBIDOPA\LEVODOPA [Suspect]
     Active Substance: CARBIDOPA\LEVODOPA
     Dosage: 20 MG PLUS 5 MG MORN:17CC;MAINT:5.7CC/H; EXTRA:3CC
     Route: 050
     Dates: start: 20220412, end: 20220419
  8. CARBIDOPA\LEVODOPA [Suspect]
     Active Substance: CARBIDOPA\LEVODOPA
     Dosage: 20 MG PLUS 5 MG MORN:18CC;MAINT:6.1CC/H; EXTRA:3CC
     Route: 050
     Dates: start: 20220419, end: 20220420
  9. CARBIDOPA\LEVODOPA [Suspect]
     Active Substance: CARBIDOPA\LEVODOPA
     Dosage: 20 MG PLUS 5 MG MORN:18CC;MAINT:6.4CC/H; EXTRA:3CC
     Route: 050
     Dates: start: 20220420, end: 20220426
  10. CARBIDOPA\LEVODOPA [Suspect]
     Active Substance: CARBIDOPA\LEVODOPA
     Dosage: MORN:18CC;MAINT:6.8CC/H;EXTRA:3CC? 20 MG + 5 MG
     Route: 050
     Dates: start: 20220426, end: 20220510
  11. CARBIDOPA\LEVODOPA [Suspect]
     Active Substance: CARBIDOPA\LEVODOPA
     Dosage: MORN:18CC;MAINT:6,4CC/H;EXTRA:3CC?20 MG + 5 MG
     Route: 050
     Dates: start: 20220510, end: 20220524
  12. CARBIDOPA\LEVODOPA [Suspect]
     Active Substance: CARBIDOPA\LEVODOPA
     Dosage: MORNING:17CC;MAINTEN:6.1CC/H;EXTRA:3CC?20 MG + 5 MG
     Route: 050
     Dates: start: 20220524
  13. CARBIDOPA\LEVODOPA [Suspect]
     Active Substance: CARBIDOPA\LEVODOPA
     Route: 050
     Dates: start: 20220524, end: 20220704
  14. CARBIDOPA\LEVODOPA [Suspect]
     Active Substance: CARBIDOPA\LEVODOPA
     Dosage: MORNIN:17CC;MAINTEN:5.8CC/H;EXTRA:3CC
     Route: 050
     Dates: start: 20220704
  15. OPICAPONE [Suspect]
     Active Substance: OPICAPONE
     Indication: Product used for unknown indication
     Route: 048
     Dates: start: 20220428, end: 20220501
  16. ATROPINE [Concomitant]
     Active Substance: ATROPINE
     Indication: Product used for unknown indication
     Dosage: 2 DROPS TO LUNCH + 1 DROP AT DINNER
  17. ESCITALOPRAM [Concomitant]
     Active Substance: ESCITALOPRAM OXALATE
     Indication: Product used for unknown indication
     Dosage: 1 TABLET AT BREAKFAST
     Dates: end: 20220406
  18. ESCITALOPRAM [Concomitant]
     Active Substance: ESCITALOPRAM OXALATE
     Dates: start: 20220406
  19. ACETAZOLAMIDE [Concomitant]
     Active Substance: ACETAZOLAMIDE
     Indication: Product used for unknown indication
     Dosage: 1TABLET AT BREAKFAST + 1TABLET AT DINNER
  20. RIVOTRIL [Concomitant]
     Active Substance: CLONAZEPAM
     Indication: Product used for unknown indication
     Dosage: 1TABLET BREAKFAST + 1TABLET BEFORE SLEEP
     Dates: end: 2022
  21. RIVOTRIL [Concomitant]
     Active Substance: CLONAZEPAM
     Dosage: 1TABLET BREAKFAST + 2 TABLET BEFORE SLEEP
  22. CYANOCOBALAMIN [Concomitant]
     Active Substance: CYANOCOBALAMIN
     Indication: Product used for unknown indication
     Dosage: AT BREAKFAST
  23. FOLIC ACID [Concomitant]
     Active Substance: FOLIC ACID
     Indication: Product used for unknown indication
     Dosage: 1 TABLET AT BREAKFAST
  24. QUETIAPINE [Concomitant]
     Active Substance: QUETIAPINE
     Indication: Product used for unknown indication
     Dosage: AT 10 PM
     Dates: start: 202205, end: 202205
  25. QUETIAPINE [Concomitant]
     Active Substance: QUETIAPINE
     Dosage: 1+1/2
     Dates: start: 202205

REACTIONS (31)
  - Dyspnoea [Recovered/Resolved]
  - Pain in extremity [Recovered/Resolved]
  - Depressed mood [Recovered/Resolved]
  - Discouragement [Recovered/Resolved]
  - Drug titration [Not Recovered/Not Resolved]
  - Disorganised speech [Unknown]
  - Muscular weakness [Unknown]
  - Hyperreflexia [Not Recovered/Not Resolved]
  - Behaviour disorder [Recovered/Resolved]
  - Hypersexuality [Recovered/Resolved]
  - Blood urea increased [Unknown]
  - Fall [Recovered/Resolved]
  - Dysphonia [Recovered/Resolved]
  - Gait disturbance [Unknown]
  - Malaise [Recovered/Resolved]
  - Malaise [Recovered/Resolved]
  - Hypoaesthesia [Unknown]
  - Aggression [Recovered/Resolved]
  - Aggression [Recovered/Resolved]
  - Insomnia [Recovered/Resolved]
  - Agitation [Recovered/Resolved]
  - Bradykinesia [Recovered/Resolved]
  - Somnolence [Recovered/Resolved]
  - Dyskinesia [Not Recovered/Not Resolved]
  - Stoma site discharge [Recovered/Resolved]
  - Stoma site discharge [Not Recovered/Not Resolved]
  - Stoma site erythema [Recovered/Resolved]
  - Stoma site odour [Recovered/Resolved]
  - Orthostatic hypotension [Recovered/Resolved]
  - Insomnia [Recovered/Resolved]
  - Bradykinesia [Recovered/Resolved]

NARRATIVE: CASE EVENT DATE: 20220301
